FAERS Safety Report 7410914-6 (Version None)
Quarter: 2011Q2

REPORT INFORMATION
  Report Type: 
  Country: None (occurrence: None)
  Receive Date: 20110413
  Receipt Date: 20110411
  Transmission Date: 20111010
  Serious: Yes (Other)
  Sender: FDA-Public Use
  Company Number: US-BAYER-2011-031636

PATIENT
  Sex: Female

DRUGS (2)
  1. YASMIN [Suspect]
     Dosage: UNK
     Dates: start: 20060701, end: 20080701
  2. OCELLA [Suspect]
     Dosage: UNK
     Dates: start: 20080701, end: 20081101

REACTIONS (1)
  - THROMBOSIS [None]
